FAERS Safety Report 24810594 (Version 1)
Quarter: 2025Q1

REPORT INFORMATION
  Report Type: Spontaneous
  Country: US (occurrence: US)
  Receive Date: 20250106
  Receipt Date: 20250106
  Transmission Date: 20250409
  Serious: Yes (Other)
  Sender: ABBVIE
  Company Number: US-ABBVIE-6071973

PATIENT
  Age: 85 Year
  Sex: Female

DRUGS (1)
  1. REFRESH RELIEVA PF XTRA [Suspect]
     Active Substance: CARBOXYMETHYLCELLULOSE SODIUM\GLYCERIN
     Indication: Dry eye
     Route: 047

REACTIONS (4)
  - Cataract [Unknown]
  - Arthritis [Unknown]
  - Product use complaint [Not Recovered/Not Resolved]
  - Visual impairment [Unknown]

NARRATIVE: CASE EVENT DATE: 20250102
